FAERS Safety Report 21951171 (Version 3)
Quarter: 2023Q1

REPORT INFORMATION
  Report Type: Report from Study
  Country: CO (occurrence: CO)
  Receive Date: 20230203
  Receipt Date: 20230317
  Transmission Date: 20230418
  Serious: Yes (Other)
  Sender: FDA-Public Use
  Company Number: CO-002147023-NVSC2022CO134728

PATIENT
  Sex: Male
  Weight: 69 kg

DRUGS (7)
  1. COSENTYX [Suspect]
     Active Substance: SECUKINUMAB
     Indication: Psoriatic arthropathy
     Dosage: 300 MG, QMO (AMPOULE)
     Route: 058
  2. COSENTYX [Suspect]
     Active Substance: SECUKINUMAB
     Dosage: 150 MG, QMO (SINCE TWO YEARS AGO)
     Route: 058
  3. COSENTYX [Suspect]
     Active Substance: SECUKINUMAB
     Dosage: 300 MG, QMO
     Route: 058
  4. COSENTYX [Suspect]
     Active Substance: SECUKINUMAB
     Dosage: 150 MG, Q2W (ONCE EVERY TWO WEEKS/ BIWEEKLY)
     Route: 058
  5. PREDNISOLONE [Concomitant]
     Active Substance: PREDNISOLONE
     Indication: Arthritis
     Dosage: 5 MG, QD (SINCE 20 YEARS AGO)
     Route: 048
  6. BETAMETHASONE [Concomitant]
     Active Substance: BETAMETHASONE
     Indication: Psoriasis
     Dosage: UNK (SINCE 20 YEARS AGO)
     Route: 061
  7. SORIDERM [Concomitant]
     Indication: Psoriasis
     Dosage: UNK (SINCE 20 YEARS AGO)
     Route: 061

REACTIONS (6)
  - Influenza [Unknown]
  - Pulmonary congestion [Recovering/Resolving]
  - Pain [Unknown]
  - Product prescribing error [Unknown]
  - Product use issue [Unknown]
  - Therapeutic product effect incomplete [Unknown]
